FAERS Safety Report 8211562-0 (Version None)
Quarter: 2012Q1

REPORT INFORMATION
  Report Type: 
  Country: None (occurrence: None)
  Receive Date: 20120315
  Receipt Date: 20120306
  Transmission Date: 20120608
  Serious: Yes (Other)
  Sender: FDA-Public Use
  Company Number: JP-VERTEX PHARMACEUTICALS INC.-AE-2012-003438

PATIENT
  Age: 55 Year
  Sex: Male

DRUGS (7)
  1. REBETOL [Concomitant]
     Indication: HEPATITIS C
     Route: 048
     Dates: start: 20120121, end: 20120203
  2. PEG-INTRON [Concomitant]
     Route: 058
     Dates: start: 20120303
  3. PEG-INTRON [Concomitant]
     Indication: HEPATITIS C
     Route: 058
     Dates: start: 20120121, end: 20120217
  4. TELAVIC (TELAPREVIR) [Suspect]
     Route: 048
     Dates: start: 20120301
  5. TELAVIC (TELAPREVIR) [Suspect]
     Indication: HEPATITIS C
     Route: 048
     Dates: start: 20120121, end: 20120229
  6. PEG-INTRON [Concomitant]
     Route: 058
     Dates: start: 20120218, end: 20120302
  7. REBETOL [Concomitant]
     Route: 048
     Dates: start: 20120204

REACTIONS (2)
  - HEPATIC ENCEPHALOPATHY [None]
  - PLATELET COUNT DECREASED [None]
